FAERS Safety Report 6037997-2 (Version None)
Quarter: 2009Q1

REPORT INFORMATION
  Report Type: 
  Country: None (occurrence: None)
  Receive Date: 20090113
  Receipt Date: 20090113
  Transmission Date: 20090719
  Serious: Yes (Other)
  Sender: FDA-Public Use
  Company Number: None

PATIENT
  Age: 41 Year
  Sex: Female
  Weight: 49.8957 kg

DRUGS (1)
  1. TERBINAFINE HCL [Suspect]
     Indication: ONYCHOMYCOSIS
     Dosage: ONE TABLE DAILY PO
     Route: 048
     Dates: start: 20081107, end: 20081207

REACTIONS (3)
  - DYSGEUSIA [None]
  - HYPOPHAGIA [None]
  - WEIGHT DECREASED [None]
